FAERS Safety Report 4368732-1 (Version None)
Quarter: 2004Q2

REPORT INFORMATION
  Report Type: 
  Country: None (occurrence: None)
  Receive Date: 20040528
  Receipt Date: 20040517
  Transmission Date: 20050107
  Serious: Yes (Other)
  Sender: FDA-Public Use
  Company Number: 2004032747

PATIENT
  Age: 65 Year
  Sex: Female

DRUGS (9)
  1. ZITHROMAX [Suspect]
     Indication: COUGH
     Dosage: 500 MG (500 MG, 1 IN 1 D), ORAL
     Route: 048
     Dates: start: 20040512, end: 20040513
  2. AMLODIPINE BESYLATE [Concomitant]
  3. VALSARTAN (VALSARTAN) [Concomitant]
  4. ASPIRIN [Concomitant]
  5. CARVEDILOL [Concomitant]
  6. OMEPRAZOLE [Concomitant]
  7. PRANOPROFEN (PRANOPROFEN) [Concomitant]
  8. CLOFEDANOL HYDROCHLORIDE (CLOFEDANOL HYDROCHLORIDE) [Concomitant]
  9. CARBOCISTEINE (CARBOCISTEINE) [Concomitant]

REACTIONS (2)
  - C-REACTIVE PROTEIN INCREASED [None]
  - SHOCK [None]
